FAERS Safety Report 15811992 (Version 1)
Quarter: 2019Q1

REPORT INFORMATION
  Report Type: Spontaneous
  Country: US (occurrence: US)
  Receive Date: 20190103
  Receipt Date: 20190103
  Transmission Date: 20190417
  Serious: No
  Sender: FDA-Public Use
  Company Number: None

PATIENT

DRUGS (2)
  1. LEVETIRACETAM 100MG/ML [Suspect]
     Active Substance: LEVETIRACETAM
  2. LACTULOSE LACTULOSE 100MG/ML [Suspect]
     Active Substance: LACTULOSE
     Route: 048

REACTIONS (4)
  - Dizziness [None]
  - Ammonia increased [None]
  - Wrong product administered [None]
  - Product dispensing error [None]
